FAERS Safety Report 24294448 (Version 6)
Quarter: 2024Q4

REPORT INFORMATION
  Report Type: Spontaneous
  Country: CO (occurrence: CO)
  Receive Date: 20240906
  Receipt Date: 20241202
  Transmission Date: 20250114
  Serious: No
  Sender: PFIZER
  Company Number: CO-PFIZER INC-PV202400111834

PATIENT
  Age: 10 Year
  Sex: Male

DRUGS (3)
  1. GENOTROPIN [Suspect]
     Active Substance: SOMATROPIN
     Indication: Adrenogenital syndrome
     Dosage: 1.8 MG, DAILY
     Route: 058
     Dates: start: 202408
  2. HYDROCORTISONE [Concomitant]
     Active Substance: HYDROCORTISONE
     Indication: Adrenogenital syndrome
     Dosage: 5 MG, 3X/DAY
  3. LETROZOLE [Concomitant]
     Active Substance: LETROZOLE
     Indication: Adrenogenital syndrome
     Dosage: 2.5 MG, 1X/DAY

REACTIONS (4)
  - Device information output issue [Unknown]
  - Product packaging quantity issue [Unknown]
  - Drug dose omission by device [Unknown]
  - Off label use [Unknown]

NARRATIVE: CASE EVENT DATE: 20240825
